FAERS Safety Report 10202747 (Version 1)
Quarter: 2014Q2

REPORT INFORMATION
  Report Type: Spontaneous
  Country: JP (occurrence: JP)
  Receive Date: 20140528
  Receipt Date: 20140528
  Transmission Date: 20141212
  Serious: Yes (Death)
  Sender: FDA-Public Use
  Company Number: JP-WATSON-2014-11349

PATIENT
  Age: 95 Year
  Sex: Male

DRUGS (6)
  1. PREDNISOLONE (UNKNOWN) [Suspect]
     Indication: PNEUMONIA
     Dosage: 40 MG, DAILY
     Route: 065
  2. PREDNISOLONE (UNKNOWN) [Suspect]
     Dosage: 60 MG, DAILY
     Route: 065
  3. METHYLPREDNISOLONE (UNKNOWN) [Suspect]
     Indication: PNEUMONIA
     Dosage: 1000 MG, DAILY
     Route: 065
  4. MEROPENEM [Concomitant]
     Indication: PNEUMONIA CHLAMYDIAL
     Dosage: 2 G, DAILY
     Route: 042
  5. AZITHROMYCIN [Concomitant]
     Indication: PNEUMONIA CHLAMYDIAL
     Dosage: 500 MG, DAILY
     Route: 042
  6. SULFAMETHOXAZOLE W/TRIMETHOPRIM [Concomitant]
     Indication: ANTIFUNGAL PROPHYLAXIS
     Dosage: 160 MG, DAILY
     Route: 065

REACTIONS (3)
  - Pneumocystis jirovecii pneumonia [Fatal]
  - Bronchopulmonary aspergillosis [Fatal]
  - Multi-organ failure [Fatal]
